FAERS Safety Report 7030044-5 (Version None)
Quarter: 2010Q4

REPORT INFORMATION
  Report Type: 
  Country: None (occurrence: None)
  Receive Date: 20101001
  Receipt Date: 20100916
  Transmission Date: 20110411
  Serious: No
  Sender: FDA-Public Use
  Company Number: 2010-00805

PATIENT
  Age: 32 Year
  Sex: Male
  Weight: 86.1834 kg

DRUGS (1)
  1. ZICAM COLD REMEDY NASAL GEL [Suspect]
     Dosage: ONE DOSE
     Dates: start: 20100915, end: 20100915

REACTIONS (3)
  - ANOSMIA [None]
  - NASAL DISCOMFORT [None]
  - NAUSEA [None]
